FAERS Safety Report 4569081-9 (Version None)
Quarter: 2005Q1

REPORT INFORMATION
  Report Type: 
  Country: None (occurrence: None)
  Receive Date: 20050203
  Receipt Date: 20050124
  Transmission Date: 20050727
  Serious: Yes (Other)
  Sender: FDA-Public Use
  Company Number: FR-BRISTOL-MYERS SQUIBB COMPANY-12837126

PATIENT
  Age: 75 Year
  Sex: Female

DRUGS (1)
  1. KENACORT [Suspect]
     Indication: OSTEOARTHRITIS
     Route: 030
     Dates: start: 20041122, end: 20041122

REACTIONS (3)
  - INJECTION SITE REACTION [None]
  - PURPURA [None]
  - SKIN ULCER [None]
